FAERS Safety Report 8791405 (Version 1)
Quarter: 2012Q4

REPORT INFORMATION
  Report Type: Spontaneous
  Country: US (occurrence: None)
  Receive Date: 20120914
  Receipt Date: 20120914
  Transmission Date: 20130627
  Serious: Yes (Other)
  Sender: FDA-Public Use
  Company Number: None

PATIENT
  Age: 10 Year
  Sex: Female
  Weight: 32.66 kg

DRUGS (4)
  1. TAMIFLU [Suspect]
     Indication: INFLUENZA
     Route: 048
     Dates: start: 20091004
  2. TAMIFLU [Suspect]
     Indication: SWINE INFLUENZA
     Route: 048
     Dates: start: 20091004
  3. TAMIFLU [Suspect]
     Indication: INFLUENZA
     Dates: start: 20101012
  4. TAMIFLU [Suspect]
     Indication: SWINE INFLUENZA
     Dates: start: 20101012

REACTIONS (1)
  - Hallucination [None]
